FAERS Safety Report 8355713-6 (Version None)
Quarter: 2012Q2

REPORT INFORMATION
  Report Type: 
  Country: None (occurrence: None)
  Receive Date: 20120510
  Receipt Date: 20120427
  Transmission Date: 20120825
  Serious: Yes (Death)
  Sender: FDA-Public Use
  Company Number: UTC-018326

PATIENT
  Age: 77 Year
  Sex: Male

DRUGS (1)
  1. TYVASO [Suspect]
     Indication: PULMONARY ARTERIAL HYPERTENSION
     Dosage: (54 MCG,4 TIMES A DAY AS TOLERATED),INHALATION
     Route: 055
     Dates: start: 20120304

REACTIONS (1)
  - DEATH [None]
